FAERS Safety Report 4574537-9 (Version None)
Quarter: 2005Q1

REPORT INFORMATION
  Report Type: 
  Country: None (occurrence: None)
  Receive Date: 20050208
  Receipt Date: 20031027
  Transmission Date: 20050727
  Serious: No
  Sender: FDA-Public Use
  Company Number: US-GLAXOSMITHKLINE-A0431751A

PATIENT
  Age: 42 Year
  Sex: Female

DRUGS (4)
  1. PAXIL [Suspect]
     Indication: PANIC DISORDER
     Dosage: 20MG PER DAY
     Route: 048
  2. PAXIL CR [Suspect]
     Indication: PANIC DISORDER
     Dosage: 25MG UNKNOWN
     Route: 048
     Dates: start: 20040201
  3. IBUPROFEN [Concomitant]
  4. ALBUTEROL [Concomitant]

REACTIONS (6)
  - ASTHENIA [None]
  - BURNING SENSATION [None]
  - DRUG WITHDRAWAL SYNDROME [None]
  - FATIGUE [None]
  - PARAESTHESIA [None]
  - WEIGHT INCREASED [None]
